FAERS Safety Report 24834818 (Version 1)
Quarter: 2025Q1

REPORT INFORMATION
  Report Type: Spontaneous
  Country: US (occurrence: US)
  Receive Date: 20250113
  Receipt Date: 20250113
  Transmission Date: 20250409
  Serious: Yes (Other)
  Sender: CHEPLAPHARM
  Company Number: US-CHEPLA-2025000393

PATIENT
  Sex: Female
  Weight: 50.599 kg

DRUGS (7)
  1. CLONAZEPAM [Suspect]
     Active Substance: CLONAZEPAM
     Indication: Product used for unknown indication
  2. APTIOM [Suspect]
     Active Substance: ESLICARBAZEPINE ACETATE
     Indication: Partial seizures
     Route: 048
  3. APTIOM [Suspect]
     Active Substance: ESLICARBAZEPINE ACETATE
     Indication: Focal dyscognitive seizures
     Route: 048
  4. APTIOM [Suspect]
     Active Substance: ESLICARBAZEPINE ACETATE
     Indication: Epilepsy
     Route: 048
  5. FLUOXETINE [Suspect]
     Active Substance: FLUOXETINE HYDROCHLORIDE
  6. SERTRALINE [Suspect]
     Active Substance: SERTRALINE HYDROCHLORIDE
  7. HYDROXYZINE [Suspect]
     Active Substance: HYDROXYZINE HYDROCHLORIDE
     Indication: Insomnia

REACTIONS (21)
  - Syncope [Unknown]
  - Polyarthritis [Unknown]
  - Vitamin D decreased [Unknown]
  - Headache [Recovering/Resolving]
  - Mood swings [Unknown]
  - Gastrointestinal disorder [Unknown]
  - Blood insulin increased [Unknown]
  - Gastrooesophageal reflux disease [Unknown]
  - Musculoskeletal pain [Unknown]
  - Anxiety disorder [Recovering/Resolving]
  - Hyperaesthesia [Unknown]
  - Sleep disorder [Unknown]
  - Food aversion [Unknown]
  - Acanthosis nigricans [Unknown]
  - Electric shock sensation [Recovering/Resolving]
  - Weight increased [Unknown]
  - Abdominal pain [Unknown]
  - Depression [Unknown]
  - Hypersomnia [Unknown]
  - Gastritis [Unknown]
  - Dizziness [Recovering/Resolving]
